FAERS Safety Report 20951082 (Version 1)
Quarter: 2022Q2

REPORT INFORMATION
  Report Type: Spontaneous
  Country: US (occurrence: None)
  Receive Date: 20220610
  Receipt Date: 20220610
  Transmission Date: 20220721
  Serious: Yes (Other)
  Sender: FDA-Public Use
  Company Number: None

PATIENT
  Age: 55 Year
  Sex: Female
  Weight: 65.8 kg

DRUGS (2)
  1. PACLITAXEL [Suspect]
     Active Substance: PACLITAXEL
     Indication: Endometrial cancer
     Dosage: OTHER FREQUENCY : CHEMOTHERAPY CYCLE;?
     Route: 042
     Dates: start: 20220525, end: 20220525
  2. CARBOPLATIN [Concomitant]
     Active Substance: CARBOPLATIN

REACTIONS (8)
  - Feeling hot [None]
  - Burning sensation [None]
  - Dyspnoea [None]
  - Blood pressure systolic increased [None]
  - Heart rate increased [None]
  - Malaise [None]
  - Chest discomfort [None]
  - Oropharyngeal discomfort [None]

NARRATIVE: CASE EVENT DATE: 20220525
